FAERS Safety Report 6929207-6 (Version None)
Quarter: 2010Q3

REPORT INFORMATION
  Report Type: 
  Country: None (occurrence: None)
  Receive Date: 20100813
  Receipt Date: 20100729
  Transmission Date: 20110219
  Serious: Yes (Hospitalization)
  Sender: FDA-Public Use
  Company Number: 7003919

PATIENT
  Age: 44 Year
  Sex: Female
  Weight: 47 kg

DRUGS (3)
  1. REBIF [Suspect]
     Indication: MULTIPLE SCLEROSIS
     Dosage: 22 MCG, 3 IN 7 D, SUBCUTANEOUS
     Route: 058
     Dates: start: 20070910, end: 20100201
  2. REBIF [Suspect]
     Indication: MULTIPLE SCLEROSIS
     Dosage: 22 MCG, 3 IN 7 D, SUBCUTANEOUS
     Route: 058
     Dates: start: 20100101, end: 20100413
  3. REBIF [Suspect]
     Indication: MULTIPLE SCLEROSIS
     Dosage: 22 MCG, 3 IN 7 D, SUBCUTANEOUS
     Route: 058
     Dates: start: 20100101, end: 20100629

REACTIONS (12)
  - ABDOMINAL PAIN [None]
  - APPENDICITIS [None]
  - COLONIC POLYP [None]
  - DIARRHOEA [None]
  - DRUG INEFFECTIVE [None]
  - DYSARTHRIA [None]
  - EXPIRED DRUG ADMINISTERED [None]
  - FATIGUE [None]
  - INJECTION SITE HAEMATOMA [None]
  - PROCEDURAL PAIN [None]
  - VITAMIN D DECREASED [None]
  - WEIGHT DECREASED [None]
